FAERS Safety Report 7192142-5 (Version None)
Quarter: 2010Q4

REPORT INFORMATION
  Report Type: 
  Country: None (occurrence: None)
  Receive Date: 20101223
  Receipt Date: 20100823
  Transmission Date: 20110411
  Serious: Yes (Other)
  Sender: FDA-Public Use
  Company Number: US-AMGEN-QUU429415

PATIENT

DRUGS (16)
  1. ENBREL [Suspect]
     Indication: PSORIASIS
     Dosage: 50 MG, QWK
     Route: 058
     Dates: start: 20071212, end: 20100801
  2. UNSPECIFIED TOPICAL PRODUCT [Concomitant]
  3. POTASSIUM [Concomitant]
     Dosage: UNK UNK, UNK
  4. FUROSEMIDE [Concomitant]
     Dosage: UNK UNK, UNK
  5. BUPROPION [Concomitant]
     Dosage: UNK UNK, UNK
  6. TAMSULOSIN HCL [Concomitant]
     Dosage: UNK UNK, UNK
  7. TRAMADOL [Concomitant]
     Dosage: UNK UNK, PRN
  8. ZOLPIDEM TARTRATE [Concomitant]
     Dosage: UNK UNK, UNK
  9. SIMVASTATIN [Concomitant]
     Dosage: UNK UNK, UNK
  10. ACETYLSALICYLIC ACID [Concomitant]
     Dosage: UNK UNK, UNK
  11. CARVEDILOL [Concomitant]
     Dosage: UNK UNK, UNK
  12. FLECAINIDE [Concomitant]
     Dosage: UNK UNK, UNK
  13. LISINOPRIL [Concomitant]
     Dosage: UNK UNK, UNK
  14. CYCLOSPORINE OPHTHALMIC EMULSION [Concomitant]
     Dosage: UNK UNK, UNK
  15. UNSPECIFIED MEDICATION [Concomitant]
     Dosage: UNK UNK, UNK
  16. FISH OIL [Concomitant]
     Dosage: UNK UNK, UNK

REACTIONS (1)
  - CHRONIC MYELOID LEUKAEMIA [None]
